FAERS Safety Report 11342089 (Version 3)
Quarter: 2015Q3

REPORT INFORMATION
  Report Type: Spontaneous
  Country: IL (occurrence: IL)
  Receive Date: 20150805
  Receipt Date: 20150826
  Transmission Date: 20151125
  Serious: Yes (Other)
  Sender: FDA-Public Use
  Company Number: IL-JNJFOC-20150722337

PATIENT
  Age: 64 Year
  Sex: Female

DRUGS (2)
  1. REMICADE [Suspect]
     Active Substance: INFLIXIMAB
     Indication: CROHN^S DISEASE
     Dosage: 2ND ADMINISTRATION
     Route: 042
  2. REMICADE [Suspect]
     Active Substance: INFLIXIMAB
     Indication: CROHN^S DISEASE
     Route: 042

REACTIONS (6)
  - Drug hypersensitivity [Recovering/Resolving]
  - Pain [Recovering/Resolving]
  - Bone pain [Recovering/Resolving]
  - Oxygen saturation decreased [Recovering/Resolving]
  - Underdose [Unknown]
  - Infusion related reaction [Recovering/Resolving]
